FAERS Safety Report 4320430-6 (Version None)
Quarter: 2004Q1

REPORT INFORMATION
  Report Type: 
  Country: None (occurrence: None)
  Receive Date: 20040319
  Receipt Date: 20040319
  Transmission Date: 20041129
  Serious: Yes (Death)
  Sender: FDA-Public Use
  Company Number: None

PATIENT
  Age: 26 Year
  Sex: Male
  Weight: 90.7194 kg

DRUGS (1)
  1. GEODON [Suspect]
     Indication: MENTAL DISORDER
     Dosage: PT NOT ALWAYS COMPLAINT HAD MEDS AT BEDSIDE BUT PRESCRIPTION SHOULD HAVE RUN OUT

REACTIONS (2)
  - HYPOKALAEMIA [None]
  - VOMITING [None]
